FAERS Safety Report 8382388-2 (Version None)
Quarter: 2012Q2

REPORT INFORMATION
  Report Type: 
  Country: None (occurrence: None)
  Receive Date: 20120524
  Receipt Date: 20120515
  Transmission Date: 20120825
  Serious: Yes (Life-Threatening, Hospitalization, Other)
  Sender: FDA-Public Use
  Company Number: JP-JNJFOC-20120503514

PATIENT
  Age: 81 Year
  Sex: Female
  Weight: 40 kg

DRUGS (4)
  1. SELBEX [Concomitant]
     Indication: GASTRITIS
     Route: 048
  2. LOXONIN [Concomitant]
     Indication: PROCEDURAL PAIN
     Route: 048
  3. FLOMOX [Concomitant]
     Indication: PERIODONTITIS
     Route: 048
  4. TRAMADOL HYDROCHLORIDE AND ACETAMINOPHEN [Suspect]
     Indication: PROCEDURAL PAIN
     Dosage: 1 PER 1 DAY
     Route: 048
     Dates: start: 20120405, end: 20120405

REACTIONS (4)
  - DIZZINESS [None]
  - NAUSEA [None]
  - DYSPNOEA [None]
  - FEELING ABNORMAL [None]
